FAERS Safety Report 9583926 (Version 1)
Quarter: 2013Q4

REPORT INFORMATION
  Report Type: Spontaneous
  Country: US (occurrence: US)
  Receive Date: 20131002
  Receipt Date: 20131002
  Transmission Date: 20140711
  Serious: No
  Sender: FDA-Public Use
  Company Number: US-AMGEN-USASP2013049812

PATIENT
  Age: 53 Year
  Sex: Male
  Weight: 79.37 kg

DRUGS (5)
  1. ENBREL [Suspect]
     Indication: PRODUCT USED FOR UNKNOWN INDICATION
     Dosage: 25 MG, 2 TIMES/WK
     Route: 058
  2. REMERON [Concomitant]
     Dosage: 15 MG, UNK
     Route: 048
  3. MULTIVITAMINS, PLAIN [Concomitant]
     Dosage: UNK
     Route: 048
  4. FISH OIL [Concomitant]
     Dosage: UNK
     Route: 048
  5. AMBIEN [Concomitant]
     Dosage: 5 MG, UNK
     Route: 048

REACTIONS (5)
  - Muscle strain [Unknown]
  - Local swelling [Unknown]
  - Joint swelling [Unknown]
  - Pain [Recovered/Resolved]
  - Tenderness [Unknown]
